FAERS Safety Report 24151897 (Version 1)
Quarter: 2024Q3

REPORT INFORMATION
  Report Type: Spontaneous
  Country: US (occurrence: None)
  Receive Date: 20240729
  Receipt Date: 20240729
  Transmission Date: 20241016
  Serious: Yes (Hospitalization)
  Sender: Public
  Company Number: None

PATIENT
  Age: 70 Year
  Sex: Male
  Weight: 95 kg

DRUGS (2)
  1. TREMELIMUMAB [Suspect]
     Active Substance: TREMELIMUMAB
     Indication: Mesothelioma
     Route: 041
     Dates: start: 20240710
  2. DURVALUMAB [Suspect]
     Active Substance: DURVALUMAB
     Indication: Mesothelioma
     Dates: start: 20240710

REACTIONS (9)
  - Pleural effusion [None]
  - Platelet count decreased [None]
  - Acute kidney injury [None]
  - Haemothorax [None]
  - Hyponatraemia [None]
  - Hypovolaemia [None]
  - Leukopenia [None]
  - Hypokalaemia [None]
  - Hypomagnesaemia [None]

NARRATIVE: CASE EVENT DATE: 20240716
